FAERS Safety Report 7178213-8 (Version None)
Quarter: 2010Q4

REPORT INFORMATION
  Report Type: 
  Country: None (occurrence: None)
  Receive Date: 20101220
  Receipt Date: 20101214
  Transmission Date: 20110411
  Serious: Yes (Hospitalization)
  Sender: FDA-Public Use
  Company Number: CHPA2010NL19084

PATIENT
  Sex: Female
  Weight: 70 kg

DRUGS (5)
  1. LAMISIL [Suspect]
     Indication: FUNGAL INFECTION
     Dosage: UNK, UNK
     Route: 061
     Dates: start: 20101103, end: 20101119
  2. CALCICHEW D3 [Concomitant]
     Dosage: 500 MG/ 400 IE
     Route: 065
  3. ALENDRONATE SODIUM [Concomitant]
     Dosage: 70 MG, QD
     Route: 048
  4. OMEPRAZOLE [Concomitant]
     Dosage: 20 MG, QD
     Route: 048
  5. ENALAPRIL [Concomitant]
     Dosage: 5 MG, QD
     Route: 048

REACTIONS (1)
  - ACUTE GENERALISED EXANTHEMATOUS PUSTULOSIS [None]
